FAERS Safety Report 8174377-8 (Version None)
Quarter: 2012Q1

REPORT INFORMATION
  Report Type: 
  Country: None (occurrence: None)
  Receive Date: 20120229
  Receipt Date: 20120223
  Transmission Date: 20120608
  Serious: Yes (Hospitalization)
  Sender: FDA-Public Use
  Company Number: US-JNJFOC-20120212520

PATIENT
  Sex: Female
  Weight: 76.1 kg

DRUGS (7)
  1. REMICADE [Suspect]
     Route: 042
     Dates: start: 20120201
  2. MERCAPTOPURINE [Suspect]
     Indication: PRODUCT USED FOR UNKNOWN INDICATION
  3. SUCRALFATE [Concomitant]
  4. REMICADE [Suspect]
     Indication: CROHN'S DISEASE
     Route: 042
     Dates: start: 20091021
  5. LANSOPRAZOLE [Concomitant]
  6. CHOLECALCIFEROL [Concomitant]
  7. DIPHENHYDRAMINE HCL [Concomitant]

REACTIONS (2)
  - GALLBLADDER DISORDER [None]
  - CROHN'S DISEASE [None]
